FAERS Safety Report 7850932-7 (Version None)
Quarter: 2011Q4

REPORT INFORMATION
  Report Type: 
  Country: None (occurrence: None)
  Receive Date: 20111026
  Receipt Date: 20111021
  Transmission Date: 20120403
  Serious: Yes (Other)
  Sender: FDA-Public Use
  Company Number: US-SANOFI-AVENTIS-2011SA069969

PATIENT
  Sex: Female

DRUGS (1)
  1. FEXOFENADINE HCL [Suspect]
     Route: 048
     Dates: start: 20111021

REACTIONS (4)
  - DYSPNOEA [None]
  - SWOLLEN TONGUE [None]
  - DIZZINESS [None]
  - HYPERSENSITIVITY [None]
